FAERS Safety Report 6249684-6 (Version None)
Quarter: 2009Q2

REPORT INFORMATION
  Report Type: 
  Country: None (occurrence: None)
  Receive Date: 20090629
  Receipt Date: 20090616
  Transmission Date: 20091009
  Serious: Yes (Other)
  Sender: FDA-Public Use
  Company Number: GB-MYLANLABS-2009S1010669

PATIENT
  Age: 17 Year
  Sex: Male
  Weight: 80 kg

DRUGS (4)
  1. RISPERIDONE [Suspect]
     Indication: PSYCHOTIC DISORDER
     Route: 048
     Dates: start: 20090101, end: 20090301
  2. FLUOXETINE HCL [Concomitant]
     Indication: DEPRESSION
     Dates: start: 20090301, end: 20090301
  3. METHYLPHENIDATE HCL [Concomitant]
     Indication: BLOOD ANTIDIURETIC HORMONE
     Dates: start: 20090201, end: 20090501
  4. VALPROATE SODIUM [Concomitant]
     Indication: MOOD SWINGS
     Route: 048
     Dates: start: 20070101, end: 20090301

REACTIONS (2)
  - DRUG WITHDRAWAL SYNDROME [None]
  - NEUROLEPTIC MALIGNANT SYNDROME [None]
